FAERS Safety Report 24093734 (Version 1)
Quarter: 2024Q3

REPORT INFORMATION
  Report Type: Spontaneous
  Country: US (occurrence: US)
  Receive Date: 20240715
  Receipt Date: 20240715
  Transmission Date: 20241016
  Serious: Yes (Other)
  Sender: BRISTOL MYERS SQUIBB
  Company Number: US-BRISTOL-MYERS SQUIBB COMPANY-2024-110101

PATIENT
  Age: 79 Year
  Sex: Female
  Weight: 61.23 kg

DRUGS (14)
  1. REVLIMID [Suspect]
     Active Substance: LENALIDOMIDE
     Indication: Plasma cell myeloma in remission
     Dosage: TAKE 1 CAPSULE BY MOUTH, ONCE DAILY FOR 28 DAYS OF EACH 28 DAY CYCLE
     Route: 048
  2. REVLIMID [Suspect]
     Active Substance: LENALIDOMIDE
     Dosage: TAKE 1 CAPSULE BY MOUTH, ONCE DAILY FOR 28 DAYS OF EACH 28 DAY CYCLE
     Route: 048
  3. ELIQUIS [Concomitant]
     Active Substance: APIXABAN
     Dosage: TAKE 1 TABLET BY MOUTH TWICE A DAY
     Route: 048
  4. CILOSTAZOL [Concomitant]
     Active Substance: CILOSTAZOL
     Dosage: TAKE 1 TABLET BY MOUTH EVERY DAY
     Route: 048
  5. FOLIC ACID [Concomitant]
     Active Substance: FOLIC ACID
     Dosage: TAKE 1 TABLET BY MOUTH EVERY DAY
     Route: 048
  6. ACETAMINOPHEN\HYDROCODONE [Concomitant]
     Active Substance: ACETAMINOPHEN\HYDROCODONE
  7. ALLOPURINOL [Concomitant]
     Active Substance: ALLOPURINOL
     Dosage: TAKE 1 TABLET BY MOUTH EVERY DAY
     Route: 048
  8. CALCIUM CARBONATE [Concomitant]
     Active Substance: CALCIUM CARBONATE
  9. FUROSEMIDE [Concomitant]
     Active Substance: FUROSEMIDE
  10. ESCITALOPRAM OXALATE [Concomitant]
     Active Substance: ESCITALOPRAM OXALATE
     Dosage: TAKE 1 TABLET BY MOUTH EVERY DAY
     Route: 048
  11. GABAPENTIN [Concomitant]
     Active Substance: GABAPENTIN
  12. DOXYCYCLINE HYCLATE [Concomitant]
     Active Substance: DOXYCYCLINE HYCLATE
  13. ATORVASTATIN CALCIUM [Concomitant]
     Active Substance: ATORVASTATIN CALCIUM
     Dosage: TAKE 1 TABLET BY MOUTH EVERY DAY
     Route: 048
  14. ISOSORBIDE MONONITRATE [Concomitant]
     Active Substance: ISOSORBIDE MONONITRATE
     Dosage: ER, TAKE 1 TABLET BY MOUTH EVERY DAY
     Route: 048

REACTIONS (1)
  - Full blood count abnormal [Unknown]
